FAERS Safety Report 21796060 (Version 1)
Quarter: 2022Q4

REPORT INFORMATION
  Report Type: Spontaneous
  Country: DE (occurrence: DE)
  Receive Date: 20221229
  Receipt Date: 20221229
  Transmission Date: 20230112
  Serious: Yes (Other)
  Sender: FDA-Public Use
  Company Number: DE-SA-SAC20221208001205

PATIENT
  Sex: Male

DRUGS (155)
  1. ATROVENT [Suspect]
     Active Substance: IPRATROPIUM BROMIDE
     Indication: Cough
     Dosage: UNK
     Route: 055
     Dates: start: 2018, end: 2018
  2. ATROVENT [Suspect]
     Active Substance: IPRATROPIUM BROMIDE
     Indication: Pneumothorax
  3. ATROVENT [Suspect]
     Active Substance: IPRATROPIUM BROMIDE
     Indication: Dysphonia
  4. ATROVENT [Suspect]
     Active Substance: IPRATROPIUM BROMIDE
     Indication: Secretion discharge
  5. ATROVENT [Suspect]
     Active Substance: IPRATROPIUM BROMIDE
     Indication: Dyspnoea
  6. ATROVENT [Suspect]
     Active Substance: IPRATROPIUM BROMIDE
     Indication: Secretion discharge
  7. ATROVENT [Suspect]
     Active Substance: IPRATROPIUM BROMIDE
     Indication: Nasopharyngitis
  8. ATROVENT [Suspect]
     Active Substance: IPRATROPIUM BROMIDE
     Indication: Pneumothorax
  9. ATROVENT [Suspect]
     Active Substance: IPRATROPIUM BROMIDE
     Indication: Nasopharyngitis
  10. ATROVENT [Suspect]
     Active Substance: IPRATROPIUM BROMIDE
     Indication: Chest discomfort
  11. ASPIRIN CALCIUM [Suspect]
     Active Substance: ASPIRIN CALCIUM
     Indication: Product used for unknown indication
     Dosage: UNK
  12. ASPIRIN CALCIUM [Suspect]
     Active Substance: ASPIRIN CALCIUM
     Indication: Product used for unknown indication
  13. ASPIRIN [Suspect]
     Active Substance: ASPIRIN
     Indication: Product used for unknown indication
     Dosage: UNK
  14. ASPIRIN [Suspect]
     Active Substance: ASPIRIN
     Indication: Product used for unknown indication
  15. BIOTIN [Suspect]
     Active Substance: BIOTIN
     Indication: Product used for unknown indication
     Dosage: 1 DF, QD
  16. BIOTIN [Suspect]
     Active Substance: BIOTIN
     Dosage: UNK
  17. BIOTIN [Suspect]
     Active Substance: BIOTIN
     Dosage: UNK
  18. BIOTIN [Suspect]
     Active Substance: BIOTIN
     Dosage: UNK
  19. BIOTIN [Suspect]
     Active Substance: BIOTIN
     Dosage: UNK
  20. BISOPROLOL [Suspect]
     Active Substance: BISOPROLOL
     Indication: Product used for unknown indication
     Dosage: UNK UNK, QD
     Dates: start: 20201210
  21. BISOPROLOL [Suspect]
     Active Substance: BISOPROLOL
     Dosage: UNK
  22. BISOPROLOL FUMARATE [Concomitant]
     Active Substance: BISOPROLOL FUMARATE
     Indication: Product used for unknown indication
     Dosage: UNK
  23. CALCIUM CARBONATE [Suspect]
     Active Substance: CALCIUM CARBONATE
     Indication: Product used for unknown indication
     Dosage: UNK
  24. COLESEVELAM HYDROCHLORIDE [Suspect]
     Active Substance: COLESEVELAM HYDROCHLORIDE
     Indication: Product used for unknown indication
     Dosage: UNK
  25. COLESEVELAM HYDROCHLORIDE [Suspect]
     Active Substance: COLESEVELAM HYDROCHLORIDE
     Dosage: UNK
  26. COLESEVELAM HYDROCHLORIDE [Suspect]
     Active Substance: COLESEVELAM HYDROCHLORIDE
     Dosage: UNK
  27. CLOPIDOGREL BISULFATE [Suspect]
     Active Substance: CLOPIDOGREL BISULFATE
     Indication: Product used for unknown indication
  28. CLOPIDOGREL BISULFATE [Suspect]
     Active Substance: CLOPIDOGREL BISULFATE
     Indication: Product used for unknown indication
     Dosage: UNK
  29. CLOPIDOGREL BISULFATE [Suspect]
     Active Substance: CLOPIDOGREL BISULFATE
     Indication: Product used for unknown indication
     Dosage: UNK
  30. CLOPIDOGREL BISULFATE [Suspect]
     Active Substance: CLOPIDOGREL BISULFATE
     Dosage: UNK
  31. CRESTOR [Suspect]
     Active Substance: ROSUVASTATIN CALCIUM
     Indication: Product use in unapproved indication
     Dosage: UNK
  32. CIALIS [Suspect]
     Active Substance: TADALAFIL
     Indication: Product used for unknown indication
     Dosage: UNK
  33. CALCIUM PANTOTHENATE [Suspect]
     Active Substance: CALCIUM PANTOTHENATE
     Indication: Product used for unknown indication
     Dosage: IN 8 HOUR
  34. DICLOFENAC DIETHYLAMINE [Suspect]
     Active Substance: DICLOFENAC DIETHYLAMINE
     Indication: Product used for unknown indication
  35. DICLOFENAC DIETHYLAMINE [Suspect]
     Active Substance: DICLOFENAC DIETHYLAMINE
     Indication: Product used for unknown indication
  36. ERGOCALCIFEROL [Suspect]
     Active Substance: ERGOCALCIFEROL
     Indication: Product used for unknown indication
     Dosage: 2000 IU, QW
  37. MOMETASONE [Suspect]
     Active Substance: MOMETASONE
     Indication: Product used for unknown indication
     Dosage: UNK
  38. MOMETASONE [Suspect]
     Active Substance: MOMETASONE
     Dosage: UNK
  39. FLOMAX [Suspect]
     Active Substance: TAMSULOSIN HYDROCHLORIDE
     Indication: Product used for unknown indication
     Dosage: UNK
  40. FLUTICASONE PROPIONATE\SALMETEROL XINAFOATE [Suspect]
     Active Substance: FLUTICASONE PROPIONATE\SALMETEROL XINAFOATE
     Indication: Nasopharyngitis
     Dosage: UNK
     Route: 065
     Dates: end: 2018
  41. FLUTICASONE PROPIONATE\SALMETEROL XINAFOATE [Suspect]
     Active Substance: FLUTICASONE PROPIONATE\SALMETEROL XINAFOATE
     Indication: Secretion discharge
     Dosage: UNK
     Route: 055
  42. FLUTICASONE PROPIONATE\SALMETEROL XINAFOATE [Suspect]
     Active Substance: FLUTICASONE PROPIONATE\SALMETEROL XINAFOATE
     Indication: Dysphonia
     Dosage: UNK
     Route: 065
  43. FLUTICASONE PROPIONATE\SALMETEROL XINAFOATE [Suspect]
     Active Substance: FLUTICASONE PROPIONATE\SALMETEROL XINAFOATE
     Indication: Pneumothorax
  44. FLUTICASONE PROPIONATE\SALMETEROL XINAFOATE [Suspect]
     Active Substance: FLUTICASONE PROPIONATE\SALMETEROL XINAFOATE
     Indication: Dyspnoea
  45. FLUTICASONE PROPIONATE\SALMETEROL XINAFOATE [Suspect]
     Active Substance: FLUTICASONE PROPIONATE\SALMETEROL XINAFOATE
     Indication: Pneumothorax
  46. FLUTICASONE PROPIONATE\SALMETEROL XINAFOATE [Suspect]
     Active Substance: FLUTICASONE PROPIONATE\SALMETEROL XINAFOATE
     Indication: Secretion discharge
  47. IBUPROFEN [Suspect]
     Active Substance: IBUPROFEN
     Indication: Product used for unknown indication
     Dosage: UNK
  48. IBUPROFEN [Suspect]
     Active Substance: IBUPROFEN
     Dosage: UNK
  49. AMBROXOL HYDROCHLORIDE [Suspect]
     Active Substance: AMBROXOL HYDROCHLORIDE
     Indication: Product used for unknown indication
     Dosage: UNK
     Route: 055
  50. AMBROXOL HYDROCHLORIDE [Suspect]
     Active Substance: AMBROXOL HYDROCHLORIDE
     Indication: Product used for unknown indication
  51. MAGNESIUM OROTATE [Suspect]
     Active Substance: MAGNESIUM OROTATE
     Indication: Product used for unknown indication
     Dosage: UNK
  52. MAGNESIUM OROTATE [Suspect]
     Active Substance: MAGNESIUM OROTATE
     Indication: Product used for unknown indication
     Dosage: UNK
  53. MAGNESIUM OROTATE [Suspect]
     Active Substance: MAGNESIUM OROTATE
     Dosage: UNK
  54. MAGNESIUM OROTATE [Suspect]
     Active Substance: MAGNESIUM OROTATE
     Indication: Product used for unknown indication
     Dosage: UNK
  55. MOMETASONE FUROATE [Suspect]
     Active Substance: MOMETASONE FUROATE
     Indication: Product used for unknown indication
     Dosage: UNK
  56. MOMETASONE FUROATE [Suspect]
     Active Substance: MOMETASONE FUROATE
     Indication: Product used for unknown indication
     Dosage: 1 IN 0.5 DAY
  57. MOMETASONE FUROATE [Suspect]
     Active Substance: MOMETASONE FUROATE
     Indication: Product used for unknown indication
     Dosage: UNK, QD
  58. MOMETASONE FUROATE [Suspect]
     Active Substance: MOMETASONE FUROATE
     Dosage: UNK, QD
  59. MAGNESIUM OROTATE [Suspect]
     Active Substance: MAGNESIUM OROTATE
     Indication: Product used for unknown indication
     Dosage: UNK
  60. OLMESARTAN MEDOXOMIL [Concomitant]
     Active Substance: OLMESARTAN MEDOXOMIL
     Indication: Product used for unknown indication
     Dosage: UNK
  61. PREDNISOLONE [Concomitant]
     Active Substance: PREDNISOLONE
     Dosage: UNK
  62. SOAP [Suspect]
     Active Substance: SOAP
     Indication: Bronchitis
     Dosage: UNK
  63. SOAP [Suspect]
     Active Substance: SOAP
     Indication: Product used for unknown indication
  64. SOAP [Suspect]
     Active Substance: SOAP
     Indication: Asthma
  65. SOAP [Suspect]
     Active Substance: SOAP
     Indication: Dyspnoea
  66. SOAP [Suspect]
     Active Substance: SOAP
     Indication: Dysphonia
  67. SOAP [Suspect]
     Active Substance: SOAP
     Indication: Secretion discharge
  68. SOAP [Suspect]
     Active Substance: SOAP
     Indication: Nasopharyngitis
  69. SOAP [Suspect]
     Active Substance: SOAP
     Indication: Cough
  70. SOAP [Suspect]
     Active Substance: SOAP
     Indication: Pneumothorax
  71. SOAP [Suspect]
     Active Substance: SOAP
     Indication: Product used for unknown indication
  72. MAGNESIUM ASPARTATE\POTASSIUM ASPARTATE [Suspect]
     Active Substance: MAGNESIUM ASPARTATE\POTASSIUM ASPARTATE
     Indication: Product used for unknown indication
  73. MAGNESIUM ASPARTATE\POTASSIUM ASPARTATE [Suspect]
     Active Substance: MAGNESIUM ASPARTATE\POTASSIUM ASPARTATE
     Dosage: UNK
  74. DIETARY SUPPLEMENT [Suspect]
     Active Substance: DIETARY SUPPLEMENT
     Indication: Product use in unapproved indication
     Dosage: UNK
  75. MAGNESIUM ASPARTATE\POTASSIUM ASPARTATE [Suspect]
     Active Substance: MAGNESIUM ASPARTATE\POTASSIUM ASPARTATE
     Indication: Product used for unknown indication
     Dosage: UNK
  76. MAGNESIUM ASPARTATE\POTASSIUM ASPARTATE [Suspect]
     Active Substance: MAGNESIUM ASPARTATE\POTASSIUM ASPARTATE
     Dosage: UNK
  77. HERBALS [Suspect]
     Active Substance: HERBALS
     Indication: Product used for unknown indication
     Dosage: UNK
  78. PRALUENT [Suspect]
     Active Substance: ALIROCUMAB
     Indication: Product used for unknown indication
     Dosage: UNK
  79. PRALUENT [Suspect]
     Active Substance: ALIROCUMAB
     Indication: Product used for unknown indication
  80. ROSUVASTATIN CALCIUM [Suspect]
     Active Substance: ROSUVASTATIN CALCIUM
     Indication: Product used for unknown indication
  81. REPATHA [Suspect]
     Active Substance: EVOLOCUMAB
     Indication: Product used for unknown indication
     Dosage: UNK, QW
  82. REPATHA [Suspect]
     Active Substance: EVOLOCUMAB
     Dosage: UNK
  83. RIVAROXABAN [Suspect]
     Active Substance: RIVAROXABAN
     Indication: Product used for unknown indication
     Dosage: UNK
  84. RIVAROXABAN [Suspect]
     Active Substance: RIVAROXABAN
     Indication: Product used for unknown indication
  85. ALBUTEROL SULFATE [Suspect]
     Active Substance: ALBUTEROL SULFATE
     Indication: Secretion discharge
     Dosage: UNK
  86. ALBUTEROL SULFATE [Suspect]
     Active Substance: ALBUTEROL SULFATE
     Indication: Dysphonia
  87. ALBUTEROL SULFATE [Suspect]
     Active Substance: ALBUTEROL SULFATE
     Indication: Pneumothorax
  88. ALBUTEROL SULFATE [Suspect]
     Active Substance: ALBUTEROL SULFATE
     Indication: Nasopharyngitis
  89. ALBUTEROL SULFATE [Suspect]
     Active Substance: ALBUTEROL SULFATE
     Indication: Pneumothorax
  90. ALBUTEROL SULFATE [Suspect]
     Active Substance: ALBUTEROL SULFATE
     Indication: Dyspnoea
  91. ALBUTEROL SULFATE [Suspect]
     Active Substance: ALBUTEROL SULFATE
     Indication: Cough
  92. ALBUTEROL SULFATE [Suspect]
     Active Substance: ALBUTEROL SULFATE
     Indication: Secretion discharge
  93. ALBUTEROL SULFATE [Suspect]
     Active Substance: ALBUTEROL SULFATE
     Indication: Chest discomfort
  94. ALBUTEROL SULFATE [Suspect]
     Active Substance: ALBUTEROL SULFATE
     Indication: Productive cough
  95. ALBUTEROL SULFATE [Suspect]
     Active Substance: ALBUTEROL SULFATE
     Indication: Secretion discharge
  96. HERBALS\PHENYL SALICYLATE [Suspect]
     Active Substance: HERBALS\PHENYL SALICYLATE
     Indication: Bronchitis
     Dosage: 10.0 DROP(1 IN 1 DAY)
  97. HERBALS\PHENYL SALICYLATE [Suspect]
     Active Substance: HERBALS\PHENYL SALICYLATE
     Indication: Asthma
  98. SALMETEROL XINAFOATE [Suspect]
     Active Substance: SALMETEROL XINAFOATE
     Indication: Chest discomfort
     Dosage: UNK
     Route: 055
     Dates: start: 2018, end: 2018
  99. SALMETEROL XINAFOATE [Suspect]
     Active Substance: SALMETEROL XINAFOATE
     Indication: Nasopharyngitis
     Dosage: UNK
  100. SALMETEROL XINAFOATE [Suspect]
     Active Substance: SALMETEROL XINAFOATE
     Indication: Cough
  101. SALMETEROL XINAFOATE [Suspect]
     Active Substance: SALMETEROL XINAFOATE
     Indication: Dysphonia
  102. SALMETEROL XINAFOATE [Suspect]
     Active Substance: SALMETEROL XINAFOATE
     Indication: Secretion discharge
  103. SALMETEROL XINAFOATE [Suspect]
     Active Substance: SALMETEROL XINAFOATE
     Indication: Dyspnoea
  104. TOCOPHEROL [Suspect]
     Active Substance: TOCOPHEROL
     Dosage: 2000 IU, QW
  105. TOCOPHEROL [Suspect]
     Active Substance: TOCOPHEROL
     Dosage: 2000 IU, QW
  106. TAMSULOSIN HYDROCHLORIDE [Suspect]
     Active Substance: TAMSULOSIN HYDROCHLORIDE
     Indication: Product used for unknown indication
     Dosage: UNK
  107. TADALAFIL [Suspect]
     Active Substance: TADALAFIL
     Indication: Product used for unknown indication
  108. TADALAFIL [Suspect]
     Active Substance: TADALAFIL
     Indication: Product used for unknown indication
     Dosage: UNK
  109. TADALAFIL [Suspect]
     Active Substance: TADALAFIL
     Dosage: UNK
  110. GINKGO [Suspect]
     Active Substance: GINKGO
     Indication: Product used for unknown indication
     Dosage: UNK
  111. GINKGO [Suspect]
     Active Substance: GINKGO
     Dosage: UNK
  112. MAGNESIUM ASPARTATE\POTASSIUM ASPARTATE [Suspect]
     Active Substance: MAGNESIUM ASPARTATE\POTASSIUM ASPARTATE
     Indication: Product use in unapproved indication
     Dosage: UNK
  113. MAGNESIUM ASPARTATE\POTASSIUM ASPARTATE [Suspect]
     Active Substance: MAGNESIUM ASPARTATE\POTASSIUM ASPARTATE
     Dosage: UNK
  114. GINKGO [Suspect]
     Active Substance: GINKGO
     Indication: Product used for unknown indication
     Dosage: UNK
  115. ACETIC ACID\DELTAMETHRIN [Suspect]
     Active Substance: ACETIC ACID\DELTAMETHRIN
     Dosage: 1000 IU, Q12H
  116. ACETIC ACID\DELTAMETHRIN [Suspect]
     Active Substance: ACETIC ACID\DELTAMETHRIN
     Dosage: 500 IU, Q12H
  117. FLUTICASONE PROPIONATE\SALMETEROL XINAFOATE [Suspect]
     Active Substance: FLUTICASONE PROPIONATE\SALMETEROL XINAFOATE
     Indication: Product used for unknown indication
     Dosage: UNK
     Route: 055
     Dates: start: 2018, end: 2018
  118. FLUTICASONE PROPIONATE\SALMETEROL XINAFOATE [Suspect]
     Active Substance: FLUTICASONE PROPIONATE\SALMETEROL XINAFOATE
     Indication: Dysphonia
     Dosage: UNK
  119. FLUTICASONE PROPIONATE\SALMETEROL XINAFOATE [Suspect]
     Active Substance: FLUTICASONE PROPIONATE\SALMETEROL XINAFOATE
     Indication: Cough
     Dosage: UNK
  120. FLUTICASONE PROPIONATE\SALMETEROL XINAFOATE [Suspect]
     Active Substance: FLUTICASONE PROPIONATE\SALMETEROL XINAFOATE
     Indication: Secretion discharge
  121. FLUTICASONE PROPIONATE\SALMETEROL XINAFOATE [Suspect]
     Active Substance: FLUTICASONE PROPIONATE\SALMETEROL XINAFOATE
     Indication: Pneumothorax
  122. FLUTICASONE PROPIONATE\SALMETEROL XINAFOATE [Suspect]
     Active Substance: FLUTICASONE PROPIONATE\SALMETEROL XINAFOATE
     Indication: Dyspnoea
  123. VITAMIN E [Suspect]
     Active Substance: .ALPHA.-TOCOPHEROL
     Indication: Product used for unknown indication
     Dosage: UNK
  124. VITAMIN E [Suspect]
     Active Substance: .ALPHA.-TOCOPHEROL
     Indication: Product used for unknown indication
     Dosage: UNK
  125. VITAMIN E [Suspect]
     Active Substance: .ALPHA.-TOCOPHEROL
     Dosage: UNK, Q2W
  126. VITAMIN E [Suspect]
     Active Substance: .ALPHA.-TOCOPHEROL
     Dosage: UNK, Q2W
  127. DICLOFENAC DIETHYLAMINE [Suspect]
     Active Substance: DICLOFENAC DIETHYLAMINE
     Indication: Product used for unknown indication
     Dosage: UNK
  128. ERGOCALCIFEROL [Suspect]
     Active Substance: ERGOCALCIFEROL
     Indication: Product used for unknown indication
     Dosage: 2000 IU, QW
  129. ERGOCALCIFEROL [Suspect]
     Active Substance: ERGOCALCIFEROL
     Dosage: UNK
  130. XARELTO [Suspect]
     Active Substance: RIVAROXABAN
     Indication: Product used for unknown indication
     Dosage: UNK
  131. XARELTO [Suspect]
     Active Substance: RIVAROXABAN
     Indication: Product used for unknown indication
  132. MAGNESIUM ASPARTATE [Concomitant]
     Active Substance: MAGNESIUM ASPARTATE
     Indication: Product used for unknown indication
     Dosage: UNK
  133. EVOLOCUMAB [Concomitant]
     Active Substance: EVOLOCUMAB
     Indication: Product used for unknown indication
     Dosage: UNK
  134. OLMESARTAN MEDOXOMIL [Concomitant]
     Active Substance: OLMESARTAN MEDOXOMIL
     Indication: Product used for unknown indication
     Dosage: UNK
  135. VITAMIN D NOS [Concomitant]
     Active Substance: VITAMIN D NOS
     Indication: Product used for unknown indication
     Dosage: UNK
  136. DICLOFENAC EPOLAMINE [Concomitant]
     Active Substance: DICLOFENAC EPOLAMINE
     Indication: Product used for unknown indication
     Dosage: UNK
  137. FLUTICASONE PROPIONATE\SALMETEROL XINAFOATE [Concomitant]
     Active Substance: FLUTICASONE PROPIONATE\SALMETEROL XINAFOATE
     Indication: Dyspnoea
     Dosage: UNK
  138. FLUTICASONE PROPIONATE\SALMETEROL XINAFOATE [Concomitant]
     Active Substance: FLUTICASONE PROPIONATE\SALMETEROL XINAFOATE
     Indication: Dysphonia
  139. FLUTICASONE PROPIONATE\SALMETEROL XINAFOATE [Concomitant]
     Active Substance: FLUTICASONE PROPIONATE\SALMETEROL XINAFOATE
     Indication: Cough
  140. FLUTICASONE PROPIONATE\SALMETEROL XINAFOATE [Concomitant]
     Active Substance: FLUTICASONE PROPIONATE\SALMETEROL XINAFOATE
     Indication: Nasopharyngitis
  141. FLUTICASONE PROPIONATE\SALMETEROL XINAFOATE [Concomitant]
     Active Substance: FLUTICASONE PROPIONATE\SALMETEROL XINAFOATE
     Indication: Secretion discharge
  142. FLUTICASONE PROPIONATE\SALMETEROL XINAFOATE [Concomitant]
     Active Substance: FLUTICASONE PROPIONATE\SALMETEROL XINAFOATE
     Indication: Pneumothorax
  143. CALCIUM [Concomitant]
     Active Substance: CALCIUM
     Dosage: UNK
  144. REPATHA [Concomitant]
     Active Substance: EVOLOCUMAB
     Indication: Product used for unknown indication
     Dosage: 1 IN 1 WEEK
  145. REPATHA [Concomitant]
     Active Substance: EVOLOCUMAB
     Dosage: 1 IN 56 HOUR
  146. REPATHA [Concomitant]
     Active Substance: EVOLOCUMAB
     Dosage: 1 DF, QW
  147. REPATHA [Concomitant]
     Active Substance: EVOLOCUMAB
     Dosage: 1 DF, QW
  148. BISOPROLOL FUMARATE [Concomitant]
     Active Substance: BISOPROLOL FUMARATE
     Indication: Product used for unknown indication
     Dosage: 1 DF, QD
  149. CLOPIDOGREL [Concomitant]
     Active Substance: CLOPIDOGREL BISULFATE
     Dosage: UNK
  150. AMBROXOL HYDROCHLORIDE [Concomitant]
     Active Substance: AMBROXOL HYDROCHLORIDE
  151. ASPIRIN CALCIUM [Concomitant]
     Active Substance: ASPIRIN CALCIUM
     Indication: Product used for unknown indication
     Dosage: UNK
  152. DICLOFENAC [Concomitant]
     Active Substance: DICLOFENAC
     Dosage: UNK
  153. EVOLOCUMAB [Concomitant]
     Active Substance: EVOLOCUMAB
     Dosage: UNK
  154. HERBALS\PHENYL SALICYLATE [Concomitant]
     Active Substance: HERBALS\PHENYL SALICYLATE
     Indication: Bronchitis
     Dosage: 10 DROPS IN 1 DAY QD
  155. HERBALS\PHENYL SALICYLATE [Concomitant]
     Active Substance: HERBALS\PHENYL SALICYLATE
     Indication: Asthma

REACTIONS (20)
  - Cardiac disorder [Not Recovered/Not Resolved]
  - Cough [Not Recovered/Not Resolved]
  - Pneumothorax [Not Recovered/Not Resolved]
  - Dysphonia [Not Recovered/Not Resolved]
  - Obstructive airways disorder [Unknown]
  - Chest discomfort [Unknown]
  - Nasopharyngitis [Unknown]
  - Muscle spasms [Unknown]
  - Brain natriuretic peptide increased [Unknown]
  - Myoglobin blood increased [Unknown]
  - Sensation of foreign body [Unknown]
  - Obstructive sleep apnoea syndrome [Unknown]
  - Atrial fibrillation [Unknown]
  - Eosinophilia [Unknown]
  - Fractional exhaled nitric oxide increased [Unknown]
  - Coronary artery disease [Unknown]
  - Plantar fasciitis [Unknown]
  - Dyspnoea exertional [Unknown]
  - Fractional exhaled nitric oxide increased [Unknown]
  - Wheezing [Unknown]

NARRATIVE: CASE EVENT DATE: 20180101
